FAERS Safety Report 9843505 (Version 1)
Quarter: 2013Q4

REPORT INFORMATION
  Report Type: Spontaneous
  Country: US (occurrence: None)
  Receive Date: 20131219
  Receipt Date: 20131219
  Transmission Date: 20140711
  Serious: Yes (Other)
  Sender: FDA-Public Use
  Company Number: 163-20785-12081579

PATIENT
  Age: 66 Year
  Sex: Female

DRUGS (29)
  1. THALOMID [Suspect]
     Indication: PLASMA CELL MYELOMA
     Dosage: 50 MG ,  1 IN 1 D, PO
     Route: 048
     Dates: start: 20120608
  2. LYRICA (PREGABALIN) [Concomitant]
  3. LOVASTATIN (UNKNOWN) [Concomitant]
  4. METFORMIN (METFORMIN) (UNKNOWN) [Concomitant]
  5. RANITIDINE (RANITIDINE) (UNKNOWN) [Concomitant]
  6. ASPIRIN (UNKNOWN) [Concomitant]
  7. CIMETIDINE (CIMETIDINE) (UNKNOWN) [Concomitant]
  8. LEXAPRO (ESCITALOPRAM OXALATE) (UNKNOWN) [Concomitant]
  9. PLAVIX (CLOPIDOGREL SULFATE) (UNKNOWN) [Concomitant]
  10. FUROSEMIDE (FUROSEMIDE) (UNKNOWN) [Concomitant]
  11. PREDNISONE (PREDNISONE) [Concomitant]
  12. LIPITOR (ATORVASTATIN) (UNKNOWN) [Concomitant]
  13. TRAMADOL (TRAMADOL) (UNKNOWN) [Concomitant]
  14. NAPROXEN (NAPROXEN) (UNKNOWN) [Concomitant]
  15. FLUOCINONIDE (FLUOCINONIDE) (UNKNOWN) [Concomitant]
  16. MIRTAZAPINE (MIRTAZAPINE) (UNKNOWN) [Concomitant]
  17. AMLODIPINE-BENAZEPRIL (UNKNOWN) [Concomitant]
  18. HYDROCHLOROTHIAZIDE (HYDROCHLOROTHIAZIDE) (UNKNOWN) [Concomitant]
  19. CIPROFLOXACIN (CIPROFLOXACIN) [Concomitant]
  20. TRIAMCINOLONE (TRIAMCINOLONE) (UNKNOWN) [Concomitant]
  21. VENTOLIN (SALBUTAMOL) (UNKNOWN) [Concomitant]
  22. HYDROXYZINE (HYDROXYZINE) (UNKNOWN) [Concomitant]
  23. CETIRIZINE (CETIRIZINE) (UNKNOWN) [Concomitant]
  24. KLOR-CON (POTASSIUM CHLORIDE) (UNKNOWN) [Concomitant]
  25. PROTOPIC (TACROLIMUS) (UNKNOWN) [Concomitant]
  26. COLCRYS (COLCHICINE) (UNKNOWN) [Concomitant]
  27. DESONIDE (DESONIDE) (UNKNOWN) [Concomitant]
  28. HYDROCORTISONE-PRAMOXINE) (UNKNOWN) [Concomitant]
  29. CLOBETASOL (CLOBETASOL) (UNKNOWN) [Concomitant]

REACTIONS (1)
  - Drug dose omission [None]
